FAERS Safety Report 10461849 (Version 1)
Quarter: 2014Q3

REPORT INFORMATION
  Report Type: Spontaneous
  Country: MX (occurrence: MX)
  Receive Date: 20140918
  Receipt Date: 20140918
  Transmission Date: 20150326
  Serious: Yes (Hospitalization, Other)
  Sender: FDA-Public Use
  Company Number: MX-SA-2014SA125105

PATIENT
  Age: 53 Year
  Sex: Male
  Weight: 72.9 kg

DRUGS (3)
  1. GALVUS [Concomitant]
     Active Substance: VILDAGLIPTIN
  2. LANTUS [Suspect]
     Active Substance: INSULIN GLARGINE
     Indication: TYPE 2 DIABETES MELLITUS
     Dosage: 10 IU IN MORNING AND 4 IU IN NIGHT
     Route: 058
     Dates: start: 2004
  3. METFORMIN [Concomitant]
     Active Substance: METFORMIN HYDROCHLORIDE
     Indication: TYPE 2 DIABETES MELLITUS
     Dosage: 10 YEARS APPROXIMATELY, STRENGTH: 850 MG
     Route: 048
     Dates: start: 2004, end: 20140910

REACTIONS (5)
  - Liver disorder [Not Recovered/Not Resolved]
  - Hyperglycaemia [Not Recovered/Not Resolved]
  - Gastrointestinal haemorrhage [Recovered/Resolved]
  - Platelet count decreased [Not Recovered/Not Resolved]
  - Haematemesis [Recovered/Resolved]

NARRATIVE: CASE EVENT DATE: 2004
